FAERS Safety Report 15556415 (Version 1)
Quarter: 2018Q4

REPORT INFORMATION
  Report Type: Report from Study
  Country: FR (occurrence: FR)
  Receive Date: 20181026
  Receipt Date: 20181026
  Transmission Date: 20190205
  Serious: Yes (Hospitalization)
  Sender: FDA-Public Use
  Company Number: FR-TEVA-2018-FR-919204

PATIENT
  Age: 24 Year
  Sex: Male

DRUGS (67)
  1. BLINDED ADDNOK [Suspect]
     Active Substance: BUPRENORPHINE HYDROCHLORIDE
  2. BLINDED LEPETAN [Suspect]
     Active Substance: BUPRENORPHINE HYDROCHLORIDE
  3. PROBUPHINE [Suspect]
     Active Substance: BUPRENORPHINE HYDROCHLORIDE
  4. SUBLOCADE [Suspect]
     Active Substance: BUPRENORPHINE
  5. BLINDED TEMGESIC 0.2 MG TABLET [Suspect]
     Active Substance: BUPRENORPHINE HYDROCHLORIDE
  6. BLINDED TRANSTEC [Suspect]
     Active Substance: BUPRENORPHINE
  7. BLINDED BUPRENORPHINE/NALOXONE [Suspect]
     Active Substance: BUPRENORPHINE HYDROCHLORIDE\NALOXONE HYDROCHLORIDE
  8. BLINDED BUPRENORPHINE/NALOXONE FILM [Suspect]
     Active Substance: BUPRENORPHINE\NALOXONE
  9. AMYL NITRITE. [Suspect]
     Active Substance: AMYL NITRITE
     Indication: PRODUCT USED FOR UNKNOWN INDICATION
     Dosage: UNK (4 POWERFUL INHALATIONS)
     Route: 055
  10. ZOPICLONE [Suspect]
     Active Substance: ZOPICLONE
     Indication: PRODUCT USED FOR UNKNOWN INDICATION
  11. BUNAVAIL [Suspect]
     Active Substance: BUPRENORPHINE HYDROCHLORIDE\NALOXONE HYDROCHLORIDE DIHYDRATE
  12. BUPRENEX [Suspect]
     Active Substance: BUPRENORPHINE HYDROCHLORIDE
  13. BLINDED LEPETAN SUPPOSITORY [Suspect]
     Active Substance: BUPRENORPHINE HYDROCHLORIDE
  14. SUBOXONE [Suspect]
     Active Substance: BUPRENORPHINE HYDROCHLORIDE\NALOXONE HYDROCHLORIDE
  15. SUBOXONE [Suspect]
     Active Substance: BUPRENORPHINE HYDROCHLORIDE\NALOXONE HYDROCHLORIDE
  16. BLINDED TEMGESIC INJECTION [Suspect]
     Active Substance: BUPRENORPHINE HYDROCHLORIDE
  17. BLINDED TIDIGESIC [Suspect]
     Active Substance: BUPRENORPHINE
  18. ZUBSOLV [Suspect]
     Active Substance: BUPRENORPHINE HYDROCHLORIDE\NALOXONE HYDROCHLORIDE
  19. BLINDED BUPRENORPHINE GENERIC [Suspect]
     Active Substance: BUPRENORPHINE
  20. BLINDED BUPRENORPHINE TABLET GENERIC [Suspect]
     Active Substance: BUPRENORPHINE
  21. ZOPICLONE [Suspect]
     Active Substance: ZOPICLONE
     Indication: PRODUCT USED FOR UNKNOWN INDICATION
     Dosage: UNKNOWN
     Route: 065
  22. HYDROXYZINE [Concomitant]
     Active Substance: HYDROXYZINE HYDROCHLORIDE
     Indication: PRODUCT USED FOR UNKNOWN INDICATION
     Dosage: UNKNOWN
     Route: 065
  23. SUBOXONE [Suspect]
     Active Substance: BUPRENORPHINE HYDROCHLORIDE\NALOXONE HYDROCHLORIDE
  24. BLINDED ADDNOK-N [Suspect]
     Active Substance: BUPRENORPHINE HYDROCHLORIDE\NALOXONE HYDROCHLORIDE
  25. BLINDED SHUMEIFEN [Suspect]
     Active Substance: BUPRENORPHINE
  26. SUBOXONE [Suspect]
     Active Substance: BUPRENORPHINE HYDROCHLORIDE\NALOXONE HYDROCHLORIDE
  27. SUBOXONE [Suspect]
     Active Substance: BUPRENORPHINE HYDROCHLORIDE\NALOXONE HYDROCHLORIDE
  28. SUBOXONE [Suspect]
     Active Substance: BUPRENORPHINE HYDROCHLORIDE\NALOXONE HYDROCHLORIDE
  29. BLINDED BUPRENORPHINE [Suspect]
     Active Substance: BUPRENORPHINE
  30. BELBUCA [Suspect]
     Active Substance: BUPRENORPHINE HYDROCHLORIDE
  31. SUBOXONE [Suspect]
     Active Substance: BUPRENORPHINE HYDROCHLORIDE\NALOXONE HYDROCHLORIDE
  32. BLINDED BUNONDOL [Suspect]
     Active Substance: BUPRENORPHINE HYDROCHLORIDE
  33. NORSPAN [Suspect]
     Active Substance: BUPRENORPHINE
  34. NORSPAN [Suspect]
     Active Substance: BUPRENORPHINE
  35. SUBLOCADE [Suspect]
     Active Substance: BUPRENORPHINE
  36. SUBOXONE [Suspect]
     Active Substance: BUPRENORPHINE HYDROCHLORIDE\NALOXONE HYDROCHLORIDE
  37. SUBOXONE [Suspect]
     Active Substance: BUPRENORPHINE HYDROCHLORIDE\NALOXONE HYDROCHLORIDE
  38. SUBOXONE [Suspect]
     Active Substance: BUPRENORPHINE HYDROCHLORIDE\NALOXONE HYDROCHLORIDE
  39. SUBUTEX [Suspect]
     Active Substance: BUPRENORPHINE HYDROCHLORIDE
  40. SUBUTEX [Suspect]
     Active Substance: BUPRENORPHINE HYDROCHLORIDE
  41. BLINDED BUPRENORPHINE IMPLANT GENERIC [Suspect]
     Active Substance: BUPRENORPHINE
  42. BLINDED BUPRENORPHINE/NALOXONE TABLET [Suspect]
     Active Substance: BUPRENORPHINE\NALOXONE
  43. ZOLPIDEM TARTRATE. [Suspect]
     Active Substance: ZOLPIDEM TARTRATE
     Indication: PRODUCT USED FOR UNKNOWN INDICATION
     Dosage: UNKNOWN
     Route: 065
  44. BUTRANS [Suspect]
     Active Substance: BUPRENORPHINE
  45. BLINDED NALTREXONE [Suspect]
     Active Substance: NALTREXONE
  46. BLINDED PENTOREL [Suspect]
     Active Substance: BUPRENORPHINE
  47. SUBLOCADE [Suspect]
     Active Substance: BUPRENORPHINE
  48. BLINDED TEMGESIC TABLET [Suspect]
     Active Substance: BUPRENORPHINE HYDROCHLORIDE
  49. BLINDED BUPRENORPHINE PATCH GENERIC [Suspect]
     Active Substance: BUPRENORPHINE
  50. BUPRENORPHINE. [Suspect]
     Active Substance: BUPRENORPHINE
     Indication: PRODUCT USED FOR UNKNOWN INDICATION
     Dosage: UNKNOWN
     Route: 065
  51. CITALOPRAM [Concomitant]
     Active Substance: CITALOPRAM HYDROBROMIDE
     Indication: PRODUCT USED FOR UNKNOWN INDICATION
     Dosage: UNKNOWN
     Route: 065
  52. BLINDED BROSPINA [Suspect]
     Active Substance: BUPRENORPHINE HYDROCHLORIDE
  53. BLINDED BUPREX 0.3 MG INJECTION [Suspect]
     Active Substance: BUPRENORPHINE HYDROCHLORIDE
  54. BLINDED LEPETAN INJECTION [Suspect]
     Active Substance: BUPRENORPHINE HYDROCHLORIDE
  55. BLINDED NOPAN [BUPRENORPHINE] [Suspect]
     Active Substance: BUPRENORPHINE
  56. SUBOXONE [Suspect]
     Active Substance: BUPRENORPHINE HYDROCHLORIDE\NALOXONE HYDROCHLORIDE
  57. SUBUTEX [Suspect]
     Active Substance: BUPRENORPHINE HYDROCHLORIDE
  58. SUBUTEX [Suspect]
     Active Substance: BUPRENORPHINE HYDROCHLORIDE
  59. BLINDED TEMGESIC 0.3 MG INJECTION [Suspect]
     Active Substance: BUPRENORPHINE HYDROCHLORIDE
  60. BLINDED TEMGESIC 0.4 MG TABLET [Suspect]
     Active Substance: BUPRENORPHINE HYDROCHLORIDE
  61. BLINDED BUPRENORPHINE/NALOXONE GENERIC [Suspect]
     Active Substance: BUPRENORPHINE\NALOXONE
  62. OXAZEPAM. [Suspect]
     Active Substance: OXAZEPAM
     Indication: PRODUCT USED FOR UNKNOWN INDICATION
     Dosage: UNKNOWN
     Route: 065
  63. BUPRENEX [Suspect]
     Active Substance: BUPRENORPHINE HYDROCHLORIDE
  64. BLINDED BUPRINE [Suspect]
     Active Substance: BUPRENORPHINE HYDROCHLORIDE
  65. SUBOXONE [Suspect]
     Active Substance: BUPRENORPHINE HYDROCHLORIDE\NALOXONE HYDROCHLORIDE
  66. SUBUTEX [Suspect]
     Active Substance: BUPRENORPHINE HYDROCHLORIDE
  67. BLINDED BUPRENORPHINE INJECTION GENERIC [Suspect]
     Active Substance: BUPRENORPHINE

REACTIONS (8)
  - Logorrhoea [Recovering/Resolving]
  - Somnolence [Recovering/Resolving]
  - Dysstasia [Recovering/Resolving]
  - Tachyphrenia [Recovering/Resolving]
  - Skin discolouration [Recovering/Resolving]
  - Agitation [Recovering/Resolving]
  - Methaemoglobinaemia [Recovering/Resolving]
  - Muscular weakness [Recovering/Resolving]
